FAERS Safety Report 24587820 (Version 1)
Quarter: 2024Q4

REPORT INFORMATION
  Report Type: Spontaneous
  Country: NO (occurrence: NO)
  Receive Date: 20241107
  Receipt Date: 20241107
  Transmission Date: 20250115
  Serious: Yes (Other)
  Sender: TEVA
  Company Number: NO-GRUNENTHAL-2024-125391

PATIENT
  Sex: Female

DRUGS (4)
  1. AMOXICILLIN [Suspect]
     Active Substance: AMOXICILLIN
     Indication: Gastric ulcer helicobacter
     Dosage: UNK
     Route: 065
     Dates: start: 2022
  2. NEXIUM [Suspect]
     Active Substance: ESOMEPRAZOLE MAGNESIUM
     Indication: Gastric ulcer helicobacter
     Dosage: UNK
     Route: 065
  3. CLARITHROMYCIN [Suspect]
     Active Substance: CLARITHROMYCIN
     Indication: Gastric ulcer helicobacter
     Dosage: UNK, KLACID CLARITHROMYCIN
     Route: 065
     Dates: start: 2022
  4. OMEPRAZOLE [Suspect]
     Active Substance: OMEPRAZOLE
     Indication: Gastric ulcer helicobacter
     Dosage: UNK
     Route: 065
     Dates: start: 2022

REACTIONS (3)
  - Impaired gastric emptying [Unknown]
  - Vomiting [Unknown]
  - Diarrhoea [Unknown]

NARRATIVE: CASE EVENT DATE: 20230101
